FAERS Safety Report 11966282 (Version 5)
Quarter: 2019Q1

REPORT INFORMATION
  Report Type: Spontaneous
  Country: US (occurrence: US)
  Receive Date: 20160127
  Receipt Date: 20190121
  Transmission Date: 20190417
  Serious: Yes (Hospitalization, Other)
  Sender: FDA-Public Use
  Company Number: US-DSJP-DSU-2015-134072

PATIENT

DRUGS (6)
  1. COREG CR [Concomitant]
     Active Substance: CARVEDILOL PHOSPHATE
     Indication: PRODUCT USED FOR UNKNOWN INDICATION
     Dosage: 40 MG, QD
     Route: 048
     Dates: start: 2009, end: 2010
  2. COREG CR [Concomitant]
     Active Substance: CARVEDILOL PHOSPHATE
     Dosage: 20 MG, QD
     Route: 048
  3. BENICAR HCT [Suspect]
     Active Substance: HYDROCHLOROTHIAZIDE\OLMESARTAN MEDOXOMIL
     Indication: HYPERTENSION
     Dosage: 40/12.5 MG, QD
     Route: 048
     Dates: end: 2010
  4. BENICAR [Suspect]
     Active Substance: OLMESARTAN MEDOXOMIL
     Indication: HYPERTENSION
     Dosage: 40 MG, QD
     Route: 048
     Dates: start: 20070101, end: 2010
  5. BENICAR HCT [Suspect]
     Active Substance: HYDROCHLOROTHIAZIDE\OLMESARTAN MEDOXOMIL
     Dosage: 40/25 MG, QD
     Route: 048
     Dates: start: 20070101
  6. POTASSIUM CHLORIDE. [Concomitant]
     Active Substance: POTASSIUM CHLORIDE
     Indication: PRODUCT USED FOR UNKNOWN INDICATION
     Dosage: 10 MG, QD
     Route: 048
     Dates: start: 2008, end: 2010

REACTIONS (16)
  - Sprue-like enteropathy [Recovering/Resolving]
  - Splenic granuloma [Unknown]
  - Hepatic cyst [Unknown]
  - Hiatus hernia [Recovered/Resolved]
  - Acute kidney injury [Recovered/Resolved]
  - Abdominal lymphadenopathy [Unknown]
  - Liver function test increased [Unknown]
  - Rectal polyp [Recovered/Resolved]
  - Renal cyst [Unknown]
  - Coeliac disease [Recovering/Resolving]
  - Dyspepsia [Unknown]
  - Bile duct stone [Recovered/Resolved]
  - Diverticulum [Unknown]
  - Constipation [Unknown]
  - Granulomatous liver disease [Unknown]
  - Hypotension [Unknown]

NARRATIVE: CASE EVENT DATE: 2009
